FAERS Safety Report 8151402-1 (Version None)
Quarter: 2012Q1

REPORT INFORMATION
  Report Type: 
  Country: None (occurrence: None)
  Receive Date: 20120220
  Receipt Date: 20120214
  Transmission Date: 20120608
  Serious: Yes (Death)
  Sender: FDA-Public Use
  Company Number: FR-ASTRAZENECA-2012SE08905

PATIENT
  Age: 60 Year
  Sex: Female

DRUGS (3)
  1. LOXAPINE HCL [Concomitant]
     Route: 048
     Dates: start: 20120101
  2. CLOZAPINE [Concomitant]
     Dates: start: 20120207
  3. QUETIAPINE FUMARATE [Suspect]
     Indication: PSYCHOTIC DISORDER
     Route: 048
     Dates: start: 20120101

REACTIONS (3)
  - DEATH [None]
  - HYPERTHERMIA [None]
  - DYSPNOEA [None]
